FAERS Safety Report 4471409-5 (Version None)
Quarter: 2004Q4

REPORT INFORMATION
  Report Type: 
  Country: None (occurrence: None)
  Receive Date: 20041006
  Receipt Date: 20041006
  Transmission Date: 20050328
  Serious: Yes (Hospitalization)
  Sender: FDA-Public Use
  Company Number: None

PATIENT
  Age: 4 Month
  Sex: Male
  Weight: 6.9 kg

DRUGS (4)
  1. POLYGAM [Suspect]
     Dosage: 3.5 GRAM X 1 DOSE INTRAVENOU
     Route: 042
     Dates: start: 20040928, end: 20040928
  2. FERRLECIT [Suspect]
     Dosage: 15MG X 1 DOSE INTRAVENOU
     Route: 042
  3. BENEDRYL [Concomitant]
  4. TYLENOL [Concomitant]

REACTIONS (2)
  - IRRITABILITY [None]
  - RESPIRATORY DISTRESS [None]
